FAERS Safety Report 6187606-7 (Version None)
Quarter: 2009Q2

REPORT INFORMATION
  Report Type: 
  Country: None (occurrence: None)
  Receive Date: 20090511
  Receipt Date: 20090304
  Transmission Date: 20091009
  Serious: Yes (Other)
  Sender: FDA-Public Use
  Company Number: 2009US000664

PATIENT
  Sex: Female

DRUGS (2)
  1. PROTOPIC [Suspect]
     Indication: DRUG USE FOR UNKNOWN INDICATION
     Dates: start: 20020901, end: 20070801
  2. ELIDEL [Suspect]
     Indication: DRUG USE FOR UNKNOWN INDICATION
     Dates: start: 20020901, end: 20070801

REACTIONS (1)
  - HODGKIN'S DISEASE [None]
